FAERS Safety Report 25663741 (Version 1)
Quarter: 2025Q3

REPORT INFORMATION
  Report Type: Spontaneous
  Country: AU (occurrence: AU)
  Receive Date: 20250811
  Receipt Date: 20250811
  Transmission Date: 20251021
  Serious: Yes (Other)
  Sender: ACCORD
  Company Number: None

PATIENT
  Sex: Female

DRUGS (5)
  1. MYCOPHENOLATE MOFETIL [Suspect]
     Active Substance: MYCOPHENOLATE MOFETIL
     Indication: Product used for unknown indication
  2. PREDNISOLONE [Suspect]
     Active Substance: PREDNISOLONE
     Indication: Product used for unknown indication
  3. WARFARIN SODIUM [Suspect]
     Active Substance: WARFARIN SODIUM
     Indication: Product used for unknown indication
  4. HEPARIN SODIUM [Concomitant]
     Active Substance: HEPARIN SODIUM
  5. VANCOMYCIN [Concomitant]
     Active Substance: VANCOMYCIN

REACTIONS (9)
  - Paraplegia [Unknown]
  - Aortic thrombosis [Unknown]
  - Disseminated intravascular coagulation [Unknown]
  - Endocarditis staphylococcal [Unknown]
  - Haematoma [Unknown]
  - Peripheral ischaemia [Unknown]
  - Renal failure [Unknown]
  - Sepsis [Unknown]
  - Staphylococcal infection [Unknown]
